APPROVED DRUG PRODUCT: HYDROCORTISONE
Active Ingredient: HYDROCORTISONE
Strength: 100%
Dosage Form/Route: POWDER;FOR RX COMPOUNDING
Application: A088082 | Product #001
Applicant: PADDOCK LABORATORIES LLC
Approved: Apr 8, 1983 | RLD: No | RS: No | Type: DISCN